FAERS Safety Report 18604385 (Version 5)
Quarter: 2021Q1

REPORT INFORMATION
  Report Type: Report from Study
  Country: CO (occurrence: CO)
  Receive Date: 20201211
  Receipt Date: 20210217
  Transmission Date: 20210419
  Serious: Yes (Hospitalization, Other)
  Sender: FDA-Public Use
  Company Number: CO-ASTELLAS-2020US039221

PATIENT
  Age: 71 Year
  Sex: Female
  Weight: 55 kg

DRUGS (9)
  1. ATORVASTATIN [Concomitant]
     Active Substance: ATORVASTATIN
     Indication: PRODUCT USED FOR UNKNOWN INDICATION
     Route: 065
  2. TACROLIMUS. [Suspect]
     Active Substance: TACROLIMUS
     Route: 048
  3. MYCOPHENOLATE [Concomitant]
     Active Substance: MYCOPHENOLIC ACID
     Indication: PRODUCT USED FOR UNKNOWN INDICATION
     Dosage: 500 MG (1), EVERY 12 HOURS
     Route: 065
  4. DILTIAZEM. [Concomitant]
     Active Substance: DILTIAZEM
     Indication: PRODUCT USED FOR UNKNOWN INDICATION
     Route: 065
  5. LEVOTHYROXINE. [Concomitant]
     Active Substance: LEVOTHYROXINE
     Indication: PRODUCT USED FOR UNKNOWN INDICATION
     Dosage: 50 ?G [1/1/2] ONCE DAILY
     Route: 065
  6. PREDNISOLONE. [Concomitant]
     Active Substance: PREDNISOLONE
     Indication: PRODUCT USED FOR UNKNOWN INDICATION
     Route: 065
  7. OMEPRAZOLE. [Concomitant]
     Active Substance: OMEPRAZOLE
     Indication: PRODUCT USED FOR UNKNOWN INDICATION
     Route: 065
  8. TACROLIMUS. [Suspect]
     Active Substance: TACROLIMUS
     Indication: LIVER TRANSPLANT
     Route: 048
     Dates: start: 20191008
  9. MORPHINE [Suspect]
     Active Substance: MORPHINE
     Indication: PAIN PROPHYLAXIS
     Dosage: UNK UNK, UNKNOWN FREQ.
     Route: 065

REACTIONS (21)
  - Senile dementia [Unknown]
  - Immunosuppressant drug level decreased [Not Recovered/Not Resolved]
  - Delusional disorder, unspecified type [Not Recovered/Not Resolved]
  - Amnesia [Not Recovered/Not Resolved]
  - Arthropathy [Recovering/Resolving]
  - Pain [Unknown]
  - Condition aggravated [Recovering/Resolving]
  - Oral candidiasis [Recovering/Resolving]
  - Asthenia [Recovering/Resolving]
  - Hypotension [Not Recovered/Not Resolved]
  - Delirium [Unknown]
  - Dizziness [Recovering/Resolving]
  - Anxiety [Recovering/Resolving]
  - Insomnia [Recovered/Resolved]
  - Mental impairment [Recovering/Resolving]
  - Secondary immunodeficiency [Unknown]
  - Tremor [Recovering/Resolving]
  - Agitation [Unknown]
  - Arthritis infective [Recovering/Resolving]
  - Neurological decompensation [Unknown]
  - Aggression [Unknown]

NARRATIVE: CASE EVENT DATE: 2020
